FAERS Safety Report 20069354 (Version 1)
Quarter: 2021Q4

REPORT INFORMATION
  Report Type: Spontaneous
  Country: US (occurrence: None)
  Receive Date: 20211112
  Receipt Date: 20211112
  Transmission Date: 20220303
  Serious: Yes (Life-Threatening)
  Sender: FDA-Public Use
  Company Number: None

PATIENT
  Age: 45 Year
  Sex: Female
  Weight: 187 kg

DRUGS (1)
  1. RIVAROXABAN [Suspect]
     Active Substance: RIVAROXABAN
     Indication: Deep vein thrombosis
     Dosage: FREQUENCY : DAILY;?
     Route: 048
     Dates: start: 20201215, end: 20210605

REACTIONS (5)
  - Heavy menstrual bleeding [None]
  - Anaemia [None]
  - Pelvic pain [None]
  - Asthenia [None]
  - Uterine leiomyoma [None]

NARRATIVE: CASE EVENT DATE: 20210605
